FAERS Safety Report 7442636-X (Version None)
Quarter: 2011Q2

REPORT INFORMATION
  Report Type: 
  Country: None (occurrence: None)
  Receive Date: 20110428
  Receipt Date: 20110418
  Transmission Date: 20111010
  Serious: Yes (Hospitalization)
  Sender: FDA-Public Use
  Company Number: US-ELI_LILLY_AND_COMPANY-US201104005725

PATIENT
  Sex: Female

DRUGS (1)
  1. HUMATROPE [Suspect]
     Indication: HYPOPITUITARISM
     Dosage: UNK UNK, UNKNOWN

REACTIONS (5)
  - MALAISE [None]
  - PANCREATIC DISORDER [None]
  - HYSTERECTOMY [None]
  - DRUG DOSE OMISSION [None]
  - HYPOTHALAMO-PITUITARY DISORDER [None]
